FAERS Safety Report 7629830-X (Version None)
Quarter: 2011Q3

REPORT INFORMATION
  Report Type: 
  Country: None (occurrence: None)
  Receive Date: 20110722
  Receipt Date: 20110629
  Transmission Date: 20111222
  Serious: Yes (Death, Other)
  Sender: FDA-Public Use
  Company Number: GB-PFIZER INC-2011071620

PATIENT
  Age: 36 Year
  Sex: Male

DRUGS (20)
  1. FAMOTIDINE [Concomitant]
  2. TRAZODONE HCL [Suspect]
     Dosage: 300 MG, 1X/DAY
  3. TRAZODONE HYDROCHLORIDE [Interacting]
  4. QUETIAPINE FUMARATE [Interacting]
  5. METOPROLOL [Concomitant]
  6. ACETAMINOPHEN [Concomitant]
  7. DOCUSATE SODIUM [Concomitant]
  8. LORAZEPAM [Concomitant]
  9. BENZONATATE [Concomitant]
  10. CHLORDIAZEPOXIDE [Concomitant]
  11. TEMAZEPAM [Concomitant]
  12. RANITIDINE [Concomitant]
  13. LITHIUM [Concomitant]
  14. TRAMADOL HCL [Interacting]
     Dosage: 50 MG, 1 TO 2 TABS AS NEEDED
  15. LANSOPRAZOLE [Concomitant]
  16. METOCLOPRAMIDE [Concomitant]
  17. FUROSEMIDE [Concomitant]
  18. ENALAPRIL [Concomitant]
  19. FOLIC ACID [Concomitant]
  20. VITAMIN B [Concomitant]

REACTIONS (2)
  - CONVULSION [None]
  - DRUG INTERACTION [None]
